FAERS Safety Report 4372324-8 (Version None)
Quarter: 2004Q2

REPORT INFORMATION
  Report Type: 
  Country: None (occurrence: None)
  Receive Date: 20040602
  Receipt Date: 20040519
  Transmission Date: 20050107
  Serious: Yes (Hospitalization)
  Sender: FDA-Public Use
  Company Number: 2004214449NO

PATIENT
  Age: 58 Year
  Sex: Female

DRUGS (9)
  1. CELEBRA (CELECOXIB) CAPSULE [Suspect]
     Dosage: ORAL
     Route: 048
  2. WARFARIN SODIUM [Suspect]
     Dosage: ORAL
     Route: 048
  3. PURIX [Concomitant]
  4. ZYRTEC [Concomitant]
  5. PRAVACHOL [Concomitant]
  6. RAMIPRIL [Concomitant]
  7. SELO-ZOK (METOPROLOL SUCCINATE) [Concomitant]
  8. OPTINATE [Concomitant]
  9. CALCIGRAN [Concomitant]

REACTIONS (10)
  - ABDOMINAL PAIN UPPER [None]
  - ANAEMIA [None]
  - CHEST PAIN [None]
  - DECREASED APPETITE [None]
  - GASTRIC ULCER [None]
  - HAEMATOCHEZIA [None]
  - HAEMORRHAGE [None]
  - NAUSEA [None]
  - VOMITING [None]
  - WEIGHT DECREASED [None]
